FAERS Safety Report 8852119 (Version 1)
Quarter: 2012Q4

REPORT INFORMATION
  Report Type: 
  Country: US (occurrence: US)
  Receive Date: 20121022
  Receipt Date: 20121022
  Transmission Date: 20130627
  Serious: Yes (Other)
  Sender: FDA-Public Use
  Company Number: US-ASTRAZENECA-2012SE78556

PATIENT
  Age: 56 Year
  Sex: Female
  Weight: 65.3 kg

DRUGS (12)
  1. CRESTOR [Suspect]
     Route: 048
  2. IBUPROFEN [Concomitant]
  3. ALEVE [Concomitant]
  4. CYMBALTA [Concomitant]
  5. CARISOPRODOL [Concomitant]
  6. METHYLTES [Concomitant]
     Dosage: QD, HS
  7. HYDROCODONE [Concomitant]
     Dosage: PRN
  8. DIAZEPAM [Concomitant]
     Dosage: PRN
  9. PROPRANOLOL [Concomitant]
  10. RELPAX [Concomitant]
  11. ZEMPLAR [Concomitant]
  12. AMLODIPINE [Concomitant]

REACTIONS (12)
  - Vertebral foraminal stenosis [Unknown]
  - Renal failure chronic [Unknown]
  - Hypertension [Unknown]
  - Hyperlipidaemia [Unknown]
  - Hyperparathyroidism secondary [Unknown]
  - Obesity [Unknown]
  - Osteoarthritis [Unknown]
  - Osteoarthritis [Unknown]
  - Back pain [Unknown]
  - Road traffic accident [Unknown]
  - Nocturia [Unknown]
  - Pneumonia [Unknown]
